FAERS Safety Report 5122582-7 (Version None)
Quarter: 2006Q4

REPORT INFORMATION
  Report Type: 
  Country: None (occurrence: None)
  Receive Date: 20061004
  Receipt Date: 20061004
  Transmission Date: 20070319
  Serious: Yes (Other)
  Sender: FDA-Public Use
  Company Number: None

PATIENT
  Sex: Male
  Weight: 149.687 kg

DRUGS (2)
  1. AVANDIA [Suspect]
     Indication: DIABETES MELLITUS NON-INSULIN-DEPENDENT
     Dosage: 4 MG TWO TIMES DAY ORAL
     Route: 048
     Dates: start: 20040301, end: 20050301
  2. AVANDIA [Suspect]
     Indication: DIABETES MELLITUS NON-INSULIN-DEPENDENT
     Dosage: 4 MG TWO TIMES DAY ORAL
     Route: 048
     Dates: start: 20060201, end: 20060701

REACTIONS (1)
  - MACULAR OEDEMA [None]
